FAERS Safety Report 5186528-8 (Version None)
Quarter: 2006Q4

REPORT INFORMATION
  Report Type: 
  Country: None (occurrence: None)
  Receive Date: 20061213
  Receipt Date: 20061201
  Transmission Date: 20070319
  Serious: Yes (Hospitalization)
  Sender: FDA-Public Use
  Company Number: CH-2006-035201

PATIENT
  Age: 39 Year
  Sex: Female

DRUGS (2)
  1. ULTRAVIST 300 [Suspect]
     Indication: ABDOMEN SCAN
     Dosage: 120 ML, 1 DOSE, INTRAVENOUS
     Route: 042
     Dates: start: 20061113, end: 20061113
  2. PANTOZOL (PANTOPRAZOLE SODIUM) [Concomitant]

REACTIONS (11)
  - ANAPHYLACTIC SHOCK [None]
  - BLOOD PH DECREASED [None]
  - CARDIAC ARREST [None]
  - CAROTID PULSE ABNORMAL [None]
  - LOSS OF CONSCIOUSNESS [None]
  - NAUSEA [None]
  - NEUROLOGICAL EXAMINATION ABNORMAL [None]
  - RESPIRATORY ARREST [None]
  - SINUS TACHYCARDIA [None]
  - SKIN DISCOLOURATION [None]
  - TACHYCARDIA [None]
